FAERS Safety Report 8154049-6 (Version None)
Quarter: 2012Q1

REPORT INFORMATION
  Report Type: 
  Country: None (occurrence: None)
  Receive Date: 20120221
  Receipt Date: 20120210
  Transmission Date: 20120608
  Serious: Yes (Other)
  Sender: FDA-Public Use
  Company Number: FR-JNJFOC-20111206066

PATIENT
  Age: 70 Year
  Sex: Male

DRUGS (4)
  1. ATRIPLA [Concomitant]
     Indication: HIV INFECTION
     Route: 065
  2. ZYTIGA [Suspect]
     Indication: PROSTATE CANCER
     Route: 048
     Dates: start: 20110201
  3. CORTICOSTEROID [Concomitant]
     Indication: PRODUCT USED FOR UNKNOWN INDICATION
     Route: 065
  4. PROZAC [Interacting]
     Indication: DEPRESSION
     Route: 048

REACTIONS (2)
  - MANIA [None]
  - DRUG INTERACTION [None]
